FAERS Safety Report 8364453-9 (Version None)
Quarter: 2012Q2

REPORT INFORMATION
  Report Type: 
  Country: None (occurrence: None)
  Receive Date: 20120516
  Receipt Date: 20120503
  Transmission Date: 20120825
  Serious: Yes (Death, Hospitalization)
  Sender: FDA-Public Use
  Company Number: NL-ALEXION-A201200895

PATIENT
  Sex: Male

DRUGS (9)
  1. SOLIRIS [Suspect]
     Dosage: 1200 MG, Q2W
     Dates: start: 20080118, end: 20120501
  2. SOTALOL HCL [Concomitant]
     Indication: CARDIAC DISORDER
     Dosage: 40 MG, BID
     Route: 048
     Dates: start: 20120210, end: 20120501
  3. TRAMADOL HYDROCHLORIDE [Concomitant]
     Indication: PAIN
     Dosage: 2X50 MG, UNK
     Route: 048
     Dates: start: 20081001, end: 20120501
  4. SOLIRIS [Suspect]
     Dosage: 900 MG, Q2W
     Route: 042
     Dates: start: 20051012, end: 20080118
  5. DESFERAL [Concomitant]
     Indication: IRON OVERLOAD
     Dosage: 500 MG, QW (500MG4X1WEEK)
     Route: 048
     Dates: start: 20051204, end: 20120501
  6. SOLIRIS [Suspect]
     Indication: PAROXYSMAL NOCTURNAL HAEMOGLOBINURIA
     Dosage: 600 MG, QW
     Route: 042
     Dates: start: 20050915, end: 20051012
  7. PYRIDOXINE HCL [Concomitant]
     Indication: VITAMIN SUPPLEMENTATION
     Dosage: 100 MG, UNK
     Route: 048
     Dates: start: 20051116, end: 20120501
  8. ATORVASTATIN CALCIUM [Concomitant]
     Indication: HYPERCHOLESTEROLAEMIA
     Dosage: 10 MG, QD
     Route: 048
     Dates: start: 20111101, end: 20120501
  9. ACENOCOUMAROL [Concomitant]
     Indication: THROMBOSIS PROPHYLAXIS
     Dosage: UNK
     Route: 048
     Dates: start: 20080806, end: 20120501

REACTIONS (6)
  - RESPIRATORY FAILURE [None]
  - INSOMNIA [None]
  - ASTHENIA [None]
  - GENERAL PHYSICAL HEALTH DETERIORATION [None]
  - DECREASED APPETITE [None]
  - PNEUMONIA [None]
